FAERS Safety Report 16989753 (Version 7)
Quarter: 2021Q2

REPORT INFORMATION
  Report Type: Report from Study
  Country: CA (occurrence: CA)
  Receive Date: 20191104
  Receipt Date: 20210422
  Transmission Date: 20210716
  Serious: Yes (Hospitalization)
  Sender: FDA-Public Use
  Company Number: CA-JNJFOC-20191040629

PATIENT
  Age: 81 Year
  Sex: Female

DRUGS (2)
  1. STELARA [Suspect]
     Active Substance: USTEKINUMAB
     Indication: PSORIASIS
     Route: 058
     Dates: start: 20180807
  2. STELARA [Suspect]
     Active Substance: USTEKINUMAB
     Dosage: RECEIVED 14TH USTEKINUMAB INJECTION OF 90 MG ON 16?NOV?2019
     Route: 058
     Dates: start: 20180407

REACTIONS (2)
  - Respiratory tract infection [Recovered/Resolved]
  - Back pain [Unknown]

NARRATIVE: CASE EVENT DATE: 20191016
